FAERS Safety Report 21511639 (Version 1)
Quarter: 2022Q4

REPORT INFORMATION
  Report Type: Spontaneous
  Country: US (occurrence: US)
  Receive Date: 20221027
  Receipt Date: 20221027
  Transmission Date: 20230113
  Serious: No
  Sender: FDA-Public Use
  Company Number: US-BRISTOL-MYERS SQUIBB COMPANY-2022-124435

PATIENT
  Sex: Female

DRUGS (4)
  1. ELIQUIS [Suspect]
     Active Substance: APIXABAN
     Indication: Deep vein thrombosis
     Route: 065
  2. ELIQUIS [Suspect]
     Active Substance: APIXABAN
     Route: 065
     Dates: start: 20221014
  3. GLEEVEC [Interacting]
     Active Substance: IMATINIB MESYLATE
     Indication: Product used for unknown indication
     Dosage: FREQUENCY:TAKE AFTER DINNER
     Route: 065
  4. REPAGLINIDE [Concomitant]
     Active Substance: REPAGLINIDE
     Indication: Product used for unknown indication
     Dosage: FREQUENCY:- TAKE HALF HOUR BEFORE DINNER
     Route: 065

REACTIONS (10)
  - Diarrhoea [Unknown]
  - Fatigue [Unknown]
  - Constipation [Unknown]
  - Abdominal distension [Unknown]
  - Dyspepsia [Unknown]
  - Flatulence [Unknown]
  - Burn oesophageal [Unknown]
  - Dyspepsia [Unknown]
  - Drug interaction [Unknown]
  - Intentional product use issue [Unknown]

NARRATIVE: CASE EVENT DATE: 20221001
